FAERS Safety Report 9437938 (Version 1)
Quarter: 2013Q3

REPORT INFORMATION
  Report Type: Spontaneous
  Country: US (occurrence: US)
  Receive Date: 20130802
  Receipt Date: 20130802
  Transmission Date: 20140515
  Serious: No
  Sender: FDA-Public Use
  Company Number: US-BRISTOL-MYERS SQUIBB COMPANY-18776468

PATIENT
  Sex: 0

DRUGS (2)
  1. COUMADIN [Suspect]
  2. LEVEMIR [Suspect]
     Dosage: LEVEMIR FLEXPEN

REACTIONS (1)
  - Injection site discolouration [Unknown]
